FAERS Safety Report 4527913-4 (Version None)
Quarter: 2004Q4

REPORT INFORMATION
  Report Type: 
  Country: None (occurrence: None)
  Receive Date: 20041122
  Receipt Date: 20040601
  Transmission Date: 20050328
  Serious: Yes (Hospitalization)
  Sender: FDA-Public Use
  Company Number: 2004S1000034

PATIENT
  Age: 47 Year
  Sex: Male
  Weight: 124.7392 kg

DRUGS (6)
  1. DELATESTRYL [Suspect]
     Indication: BLOOD TESTOSTERONE
     Dosage: 200 MG/L;QOW;IM; 1.5 ML;QOW;IM;1.0 ML;QOW;IM
     Dates: end: 20031201
  2. DELATESTRYL [Suspect]
     Indication: BLOOD TESTOSTERONE
     Dosage: 200 MG/L;QOW;IM; 1.5 ML;QOW;IM;1.0 ML;QOW;IM
     Dates: start: 20040101, end: 20040801
  3. DELATESTRYL [Suspect]
     Indication: BLOOD TESTOSTERONE
     Dosage: 200 MG/L;QOW;IM; 1.5 ML;QOW;IM;1.0 ML;QOW;IM
     Dates: start: 20030101
  4. PEPCID [Concomitant]
  5. MULTI-VITAMIN [Concomitant]
  6. CALCIUM WITH VITAMIN D [Concomitant]

REACTIONS (3)
  - BLOOD PRESSURE INCREASED [None]
  - DRUG INEFFECTIVE [None]
  - KNEE OPERATION [None]
